FAERS Safety Report 15390575 (Version 2)
Quarter: 2019Q3

REPORT INFORMATION
  Report Type: Spontaneous
  Country: ES (occurrence: ES)
  Receive Date: 20180917
  Receipt Date: 20190822
  Transmission Date: 20191004
  Serious: Yes (Life-Threatening, Hospitalization, Other)
  Sender: FDA-Public Use
  Company Number: ES-APOTEX-2018AP020601

PATIENT
  Age: 60 Year
  Sex: Female

DRUGS (2)
  1. FLECAINIDE [Suspect]
     Active Substance: FLECAINIDE
     Indication: ATRIAL FIBRILLATION
  2. FLECAINIDE [Suspect]
     Active Substance: FLECAINIDE
     Indication: ATRIAL FIBRILLATION
     Dosage: 300 MG, UNK
     Route: 065

REACTIONS (11)
  - Cardio-respiratory arrest [Recovered/Resolved]
  - Overdose [Recovering/Resolving]
  - Ventricular tachycardia [Recovered/Resolved]
  - Pulseless electrical activity [Recovered/Resolved]
  - Condition aggravated [Unknown]
  - Syncope [Unknown]
  - Toxicity to various agents [Recovering/Resolving]
  - Electrocardiogram QRS complex prolonged [Recovered/Resolved]
  - Electrocardiogram QT prolonged [Recovered/Resolved]
  - Hypotension [Unknown]
  - Electrocardiogram PR prolongation [Recovered/Resolved]
